FAERS Safety Report 4825231-8 (Version None)
Quarter: 2005Q4

REPORT INFORMATION
  Report Type: 
  Country: None (occurrence: None)
  Receive Date: 20051109
  Receipt Date: 20051109
  Transmission Date: 20060501
  Serious: No
  Sender: FDA-Public Use
  Company Number: None

PATIENT
  Age: 73 Year
  Sex: Male
  Weight: 89 kg

DRUGS (4)
  1. AZTREONAM [Suspect]
     Indication: BACTERIAL INFECTION
     Dosage: 2 GRAM IV Q 8 H
     Route: 042
  2. METRONIDAZOLE [Concomitant]
  3. VANCOMYCIN [Concomitant]
  4. ACETYLCYSTEINE [Concomitant]

REACTIONS (1)
  - RASH [None]
